FAERS Safety Report 16640417 (Version 2)
Quarter: 2019Q3

REPORT INFORMATION
  Report Type: Spontaneous
  Country: GR (occurrence: GR)
  Receive Date: 20190728
  Receipt Date: 20190905
  Transmission Date: 20191004
  Serious: Yes (Other)
  Sender: FDA-Public Use
  Company Number: GR-ROCHE-2358625

PATIENT
  Sex: Female
  Weight: 62 kg

DRUGS (15)
  1. PREZOLON [Suspect]
     Active Substance: PREDNISOLONE
     Indication: B-CELL LYMPHOMA
     Dosage: 5 DAYS, 2 CYCLES
     Route: 042
     Dates: start: 20190506, end: 20190527
  2. RITUXIMAB. [Suspect]
     Active Substance: RITUXIMAB
     Indication: B-CELL LYMPHOMA
     Route: 042
     Dates: start: 20181130
  3. VEPESID [Suspect]
     Active Substance: ETOPOSIDE
     Indication: B-CELL LYMPHOMA
     Route: 042
     Dates: start: 20190506, end: 20190527
  4. VEPESID [Suspect]
     Active Substance: ETOPOSIDE
     Indication: B-CELL LYMPHOMA
  5. RITUXIMAB. [Suspect]
     Active Substance: RITUXIMAB
     Indication: B-CELL LYMPHOMA
  6. PLATINOL [Suspect]
     Active Substance: CISPLATIN
     Indication: B-CELL LYMPHOMA
     Route: 042
     Dates: start: 20190506, end: 20190527
  7. DOXORUBICIN [Suspect]
     Active Substance: DOXORUBICIN
     Indication: B-CELL LYMPHOMA
     Dosage: DAY 1 CYCLES 1 FOR 6 CYCLES
     Route: 042
     Dates: end: 20190329
  8. ARA-C [Suspect]
     Active Substance: CYTARABINE
     Indication: B-CELL LYMPHOMA
     Route: 042
     Dates: start: 20190506, end: 20190527
  9. ARA-C [Suspect]
     Active Substance: CYTARABINE
     Indication: B-CELL LYMPHOMA
  10. PLATINOL [Suspect]
     Active Substance: CISPLATIN
     Indication: B-CELL LYMPHOMA
  11. RITUXIMAB. [Suspect]
     Active Substance: RITUXIMAB
     Indication: B-CELL LYMPHOMA
     Dosage: DAY 1 CYCLE 1 FOR 6 CYCLES
     Route: 042
     Dates: end: 20190329
  12. RITUXIMAB. [Suspect]
     Active Substance: RITUXIMAB
     Dosage: 2 SALVAGE REGIMENS, 2 CYCLES
     Route: 042
     Dates: start: 20190506, end: 20190527
  13. CYCLOPHOSPHAMIDE. [Suspect]
     Active Substance: CYCLOPHOSPHAMIDE
     Indication: B-CELL LYMPHOMA
     Dosage: DAY 1 CYCLES 1 FOR 6 CYCLES
     Route: 042
     Dates: end: 20190329
  14. RITUXIMAB. [Suspect]
     Active Substance: RITUXIMAB
     Indication: B-CELL LYMPHOMA
     Dosage: CYCLE 2 DAY 1 FOR 6 CYCLES
     Route: 058
  15. PREZOLON [Suspect]
     Active Substance: PREDNISOLONE
     Indication: B-CELL LYMPHOMA
     Dosage: DAY 1 CYCLES 5 FOR 6 CYCLES
     Route: 042
     Dates: end: 20190329

REACTIONS (3)
  - Pyrexia [Unknown]
  - B-cell lymphoma refractory [Unknown]
  - Pain [Unknown]
